FAERS Safety Report 25136039 (Version 1)
Quarter: 2025Q1

REPORT INFORMATION
  Report Type: Spontaneous
  Country: US (occurrence: None)
  Receive Date: 20250328
  Receipt Date: 20250328
  Transmission Date: 20250409
  Serious: Yes (Hospitalization)
  Sender: FDA-CTU
  Company Number: None

PATIENT
  Age: 82 Year
  Sex: Female
  Weight: 49.7 kg

DRUGS (3)
  1. ERTAPENEM [Suspect]
     Active Substance: ERTAPENEM
     Indication: Osteomyelitis
     Dates: start: 20250222, end: 20250317
  2. Daptomycin 400mg IV [Concomitant]
     Dates: start: 20250222, end: 20250317
  3. FLUCONAZOLE [Concomitant]
     Active Substance: FLUCONAZOLE
     Dates: start: 20250303, end: 20250317

REACTIONS (2)
  - Encephalopathy [None]
  - Toxicity to various agents [None]

NARRATIVE: CASE EVENT DATE: 20250311
